FAERS Safety Report 10772050 (Version 1)
Quarter: 2015Q1

REPORT INFORMATION
  Report Type: Spontaneous
  Country: ES (occurrence: ES)
  Receive Date: 20150206
  Receipt Date: 20150206
  Transmission Date: 20150721
  Serious: Yes (Hospitalization)
  Sender: FDA-Public Use
  Company Number: ES-ABBVIE-15P-144-1342111-00

PATIENT
  Age: 64 Year
  Sex: Female

DRUGS (3)
  1. ROTIGOTINE [Suspect]
     Active Substance: ROTIGOTINE
     Indication: RESTLESS LEGS SYNDROME
     Route: 062
     Dates: start: 20130416, end: 20140501
  2. DEPAKINE [Suspect]
     Active Substance: VALPROATE SODIUM
     Indication: RESTLESS LEGS SYNDROME
     Dosage: GASTRO-RESISTANT TABLET
     Route: 048
     Dates: start: 20130416, end: 20140501
  3. GABAPENTIN. [Suspect]
     Active Substance: GABAPENTIN
     Indication: RESTLESS LEGS SYNDROME
     Dosage: CAPSULE, HARD
     Route: 048
     Dates: start: 20130428, end: 20140501

REACTIONS (1)
  - Autoimmune hepatitis [Recovered/Resolved]

NARRATIVE: CASE EVENT DATE: 20140320
